FAERS Safety Report 6919296-7 (Version None)
Quarter: 2010Q3

REPORT INFORMATION
  Report Type: 
  Country: None (occurrence: None)
  Receive Date: 20100811
  Receipt Date: 20100804
  Transmission Date: 20110219
  Serious: Yes (Hospitalization, Disabling)
  Sender: FDA-Public Use
  Company Number: A0866007A

PATIENT
  Age: 56 Year
  Sex: Male
  Weight: 136.4 kg

DRUGS (6)
  1. AVANDIA [Suspect]
     Dosage: 4MG PER DAY
     Route: 048
     Dates: start: 20020101, end: 20071014
  2. METFORMIN HCL [Concomitant]
  3. LISINOPRIL [Concomitant]
  4. NORVASC [Concomitant]
  5. PROTONIX [Concomitant]
  6. NABUMETONE [Concomitant]

REACTIONS (7)
  - CEREBROVASCULAR ACCIDENT [None]
  - CORONARY ARTERY DISEASE [None]
  - DEPRESSION [None]
  - GASTRIC HAEMORRHAGE [None]
  - PANIC ATTACK [None]
  - SLEEP APNOEA SYNDROME [None]
  - STRESS [None]
